FAERS Safety Report 15547805 (Version 4)
Quarter: 2018Q4

REPORT INFORMATION
  Report Type: Spontaneous
  Country: DE (occurrence: DE)
  Receive Date: 20181024
  Receipt Date: 20181205
  Transmission Date: 20190205
  Serious: Yes (Hospitalization)
  Sender: FDA-Public Use
  Company Number: DE-PFIZER INC-2018361697

PATIENT
  Age: 60 Year
  Sex: Female
  Weight: 76 kg

DRUGS (12)
  1. DEKRISTOL [Concomitant]
     Active Substance: CHOLECALCIFEROL
     Dosage: 20000 IU, WEEKLY EVERY WEDNESDAY
     Dates: start: 201308
  2. METHOTREXATE (METHOTREXATE SODIUM) [Suspect]
     Active Substance: METHOTREXATE SODIUM
     Indication: SCLERODERMA
     Dosage: 12.5 MG, WEEKLY (EVERY SUNDAY: 10.5MG + 2.5 MG)
     Dates: start: 201308
  3. METHOTREXATE (METHOTREXATE SODIUM) [Suspect]
     Active Substance: METHOTREXATE SODIUM
     Indication: MORPHOEA
  4. OPIPRAMOL [OPIPRAMOL HYDROCHLORIDE] [Concomitant]
     Dosage: 25 MG, AS NEEDED (AT NIGHT)
  5. BIOTIN [Concomitant]
     Active Substance: BIOTIN
     Dosage: 5 MG, 1X/DAY
     Dates: start: 2010
  6. PANTOPRAZOL AL [Concomitant]
     Active Substance: PANTOPRAZOLE SODIUM
     Dosage: 40 MG, WEEKLY (EVERY SUNDAY TOGETHER WITH MTX)
     Dates: start: 201308
  7. CURCUMIN LOGES [Concomitant]
     Dosage: UNK
     Dates: start: 201806, end: 20180810
  8. FOLIC ACID. [Concomitant]
     Active Substance: FOLIC ACID
     Dosage: 5 MG, WEEKLY (EVERY TUESDAY)
     Dates: start: 201308
  9. BULLRICH SALZ [Concomitant]
     Dosage: 1-2 TABLETS, DAILY
     Dates: start: 201807
  10. HYLO COMOD [Concomitant]
     Active Substance: HYALURONATE SODIUM
     Dosage: UNK GTT, 2X/DAY
  11. IBUPROFEN [IBUPROFEN SODIUM] [Concomitant]
     Dosage: 600 MG, AS NEEDED
  12. MAGNESIUM VERLA N [MAGNESIUM GLUTAMATE] [Concomitant]
     Dosage: UNK
     Dates: start: 2007

REACTIONS (11)
  - Stress [Unknown]
  - Eye irritation [Recovered/Resolved]
  - Pain in extremity [Not Recovered/Not Resolved]
  - Dermatitis atopic [Unknown]
  - Product use in unapproved indication [Unknown]
  - Weight decreased [Recovered/Resolved]
  - Dizziness [Unknown]
  - Fatigue [Unknown]
  - Eye pain [Recovered/Resolved]
  - Gait disturbance [Unknown]
  - Photophobia [Recovered/Resolved]

NARRATIVE: CASE EVENT DATE: 201308
